FAERS Safety Report 8329571-X (Version None)
Quarter: 2012Q2

REPORT INFORMATION
  Report Type: 
  Country: None (occurrence: None)
  Receive Date: 20120502
  Receipt Date: 20120427
  Transmission Date: 20120825
  Serious: Yes (Hospitalization, Other)
  Sender: FDA-Public Use
  Company Number: US-BAYER-2012-030218

PATIENT
  Age: 39 Year
  Sex: Female
  Weight: 72.562 kg

DRUGS (3)
  1. EFFEXOR [Concomitant]
  2. SINGULAIR [Concomitant]
  3. YAZ [Suspect]
     Dosage: UNK
     Dates: start: 20090601, end: 20100801

REACTIONS (7)
  - CHOLECYSTITIS [None]
  - EMOTIONAL DISTRESS [None]
  - INJURY [None]
  - ANXIETY [None]
  - PAIN [None]
  - DEEP VEIN THROMBOSIS [None]
  - GENERAL PHYSICAL HEALTH DETERIORATION [None]
